FAERS Safety Report 13585917 (Version 7)
Quarter: 2017Q3

REPORT INFORMATION
  Report Type: Report from Study
  Country: BR (occurrence: BR)
  Receive Date: 20170526
  Receipt Date: 20170828
  Transmission Date: 20171127
  Serious: Yes (Life-Threatening, Other)
  Sender: FDA-Public Use
  Company Number: PHHY2016BR167166

PATIENT
  Sex: Female
  Weight: 84 kg

DRUGS (5)
  1. COSENTYX [Suspect]
     Active Substance: SECUKINUMAB
     Indication: PSORIASIS
     Dosage: 300 MG, QMO
     Route: 058
     Dates: start: 20161031
  2. COSENTYX [Suspect]
     Active Substance: SECUKINUMAB
     Dosage: 300 MG, UNK
     Route: 058
     Dates: start: 20170206
  3. COSENTYX [Suspect]
     Active Substance: SECUKINUMAB
     Dosage: 300 MG, UNK
     Route: 058
     Dates: start: 20170327
  4. STELARA [Concomitant]
     Active Substance: USTEKINUMAB
     Indication: PRODUCT USED FOR UNKNOWN INDICATION
     Route: 065
  5. COSENTYX [Suspect]
     Active Substance: SECUKINUMAB
     Indication: PSORIATIC ARTHROPATHY
     Dosage: 300 MG, UNK
     Route: 058
     Dates: start: 20170103

REACTIONS (18)
  - Hyperaesthesia [Recovered/Resolved]
  - Hypersensitivity [Unknown]
  - Therapy non-responder [Unknown]
  - Erythema [Recovered/Resolved]
  - Discomfort [Unknown]
  - Scar [Unknown]
  - Skin discolouration [Not Recovered/Not Resolved]
  - Pruritus generalised [Recovered/Resolved]
  - Influenza [Recovered/Resolved]
  - Drug ineffective [Unknown]
  - Pain [Recovering/Resolving]
  - Skin burning sensation [Unknown]
  - Insomnia [Unknown]
  - Feeling abnormal [Unknown]
  - Psoriasis [Unknown]
  - Apparent death [Unknown]
  - Burning sensation [Recovered/Resolved]
  - Malaise [Unknown]
